FAERS Safety Report 7817060-8 (Version None)
Quarter: 2011Q4

REPORT INFORMATION
  Report Type: 
  Country: None (occurrence: None)
  Receive Date: 20111017
  Receipt Date: 20111005
  Transmission Date: 20120403
  Serious: Yes (Life-Threatening, Other)
  Sender: FDA-Public Use
  Company Number: PHHY2011JP89338

PATIENT

DRUGS (1)
  1. DEFERASIROX [Suspect]

REACTIONS (1)
  - AORTIC ANEURYSM RUPTURE [None]
